FAERS Safety Report 9433219 (Version 2)
Quarter: 2013Q3

REPORT INFORMATION
  Report Type: Report from Study
  Country: JP (occurrence: JP)
  Receive Date: 20130731
  Receipt Date: 20130829
  Transmission Date: 20140515
  Serious: No
  Sender: FDA-Public Use
  Company Number: JP-GLAXOSMITHKLINE-B0900578A

PATIENT
  Age: 56 Year
  Sex: Male
  Weight: 65 kg

DRUGS (1)
  1. VOTRIENT [Suspect]
     Indication: UNDIFFERENTIATED SARCOMA
     Dosage: 800MG PER DAY
     Route: 048
     Dates: start: 20130221, end: 20130327

REACTIONS (2)
  - Fatigue [Not Recovered/Not Resolved]
  - Hepatic function abnormal [Not Recovered/Not Resolved]
